FAERS Safety Report 21048423 (Version 1)
Quarter: 2022Q3

REPORT INFORMATION
  Report Type: Spontaneous
  Country: US (occurrence: US)
  Receive Date: 20220706
  Receipt Date: 20220706
  Transmission Date: 20221026
  Serious: No
  Sender: FDA-Public Use
  Company Number: US-PFIZER INC-202200916276

PATIENT
  Age: 48 Year
  Sex: Female

DRUGS (9)
  1. PAXLOVID [Suspect]
     Active Substance: NIRMATRELVIR\RITONAVIR
     Indication: COVID-19 treatment
     Dosage: UNK
     Dates: start: 20220628
  2. AMLODIPINE BESYLATE [Concomitant]
     Active Substance: AMLODIPINE BESYLATE
     Dosage: 5 MG
  3. METFORMIN HYDROCHLORIDE [Concomitant]
     Active Substance: METFORMIN HYDROCHLORIDE
     Dosage: 500 MG
  4. LISINOPRIL [Concomitant]
     Active Substance: LISINOPRIL
     Dosage: 20 MG
  5. HYDROCHLOROTHIAZIDE [Concomitant]
     Active Substance: HYDROCHLOROTHIAZIDE
     Dosage: 25 MG
  6. GLIMEPIRIDE [Concomitant]
     Active Substance: GLIMEPIRIDE
     Dosage: 2 MG
  7. ZINC METHIONINE SULFATE [Concomitant]
     Active Substance: ZINC METHIONINE SULFATE
     Dosage: UNK
  8. VITAMIN D3 [Concomitant]
     Active Substance: CHOLECALCIFEROL
     Dosage: 3000 IU
  9. ASCORBIC ACID [Concomitant]
     Active Substance: ASCORBIC ACID
     Dosage: 250 MG

REACTIONS (4)
  - Dysgeusia [Not Recovered/Not Resolved]
  - Taste disorder [Not Recovered/Not Resolved]
  - Illness [Not Recovered/Not Resolved]
  - Nausea [Not Recovered/Not Resolved]

NARRATIVE: CASE EVENT DATE: 20220628
